FAERS Safety Report 5443070-4 (Version None)
Quarter: 2007Q3

REPORT INFORMATION
  Report Type: 
  Country: None (occurrence: None)
  Receive Date: 20070905
  Receipt Date: 20070831
  Transmission Date: 20080115
  Serious: Yes (Other)
  Sender: FDA-Public Use
  Company Number: PHNU2007DE03019

PATIENT
  Age: 2 Year
  Sex: Female

DRUGS (1)
  1. ZADITEN [Suspect]
     Indication: SKIN REACTION
     Dosage: 1 DF, BID
     Route: 048

REACTIONS (1)
  - ASTHMA [None]
